FAERS Safety Report 22606954 (Version 2)
Quarter: 2023Q2

REPORT INFORMATION
  Report Type: Spontaneous
  Country: US (occurrence: US)
  Receive Date: 20230615
  Receipt Date: 20230626
  Transmission Date: 20230722
  Serious: Yes (Other)
  Sender: FDA-Public Use
  Company Number: US-TEVA-2023-US-2895404

PATIENT
  Sex: Male

DRUGS (18)
  1. ABIRATERONE ACETATE [Interacting]
     Active Substance: ABIRATERONE ACETATE
     Indication: Hormone-refractory prostate cancer
     Route: 065
  2. ABIRATERONE ACETATE [Interacting]
     Active Substance: ABIRATERONE ACETATE
     Indication: Metastasis
  3. PREDNISONE [Suspect]
     Active Substance: PREDNISONE
     Indication: Hormone-refractory prostate cancer
     Route: 065
  4. PREDNISONE [Suspect]
     Active Substance: PREDNISONE
     Indication: Metastasis
  5. DOCETAXEL [Suspect]
     Active Substance: DOCETAXEL
     Indication: Hormone-refractory prostate cancer
     Route: 065
  6. DOCETAXEL [Suspect]
     Active Substance: DOCETAXEL
     Indication: Metastasis
  7. SPIRONOLACTONE [Interacting]
     Active Substance: SPIRONOLACTONE
     Indication: Primary hyperaldosteronism
     Dosage: 50 MILLIGRAM DAILY; ONCE DAILY
     Route: 065
  8. SPIRONOLACTONE [Interacting]
     Active Substance: SPIRONOLACTONE
     Dosage: 200 MILLIGRAM DAILY; INCREASED ONCE DAILY
     Route: 065
  9. DAROLUTAMIDE [Suspect]
     Active Substance: DAROLUTAMIDE
     Indication: Hormone-refractory prostate cancer
     Route: 065
  10. DAROLUTAMIDE [Suspect]
     Active Substance: DAROLUTAMIDE
     Indication: Metastasis
  11. LEUPROLIDE [Concomitant]
     Active Substance: LEUPROLIDE
     Indication: Antiandrogen therapy
     Route: 065
  12. CLONIDINE [Concomitant]
     Active Substance: CLONIDINE
     Indication: Product used for unknown indication
     Dosage: .2 MILLIGRAM DAILY; ONCE DAILY
     Route: 065
  13. INDAPAMIDE [Concomitant]
     Active Substance: INDAPAMIDE
     Indication: Product used for unknown indication
     Dosage: 2.5 MILLIGRAM DAILY; ONCE DAILY
     Route: 065
  14. LISINOPRIL [Concomitant]
     Active Substance: LISINOPRIL
     Indication: Product used for unknown indication
     Dosage: 10 MILLIGRAM DAILY; ONCE DAILY
     Route: 065
  15. METOPROLOL SUCCINATE [Concomitant]
     Active Substance: METOPROLOL SUCCINATE
     Indication: Product used for unknown indication
     Dosage: 100 MILLIGRAM DAILY; ONCE DAILY
     Route: 065
  16. METOPROLOL SUCCINATE [Concomitant]
     Active Substance: METOPROLOL SUCCINATE
     Dosage: 50 MILLIGRAM DAILY; AFTER SURGERY, ONCE DAILY
     Route: 065
  17. TERAZOSIN [Concomitant]
     Active Substance: TERAZOSIN HYDROCHLORIDE
     Indication: Product used for unknown indication
     Dosage: 4 MILLIGRAM DAILY; ONCE DAILY
     Route: 065
  18. TERAZOSIN [Concomitant]
     Active Substance: TERAZOSIN HYDROCHLORIDE
     Dosage: 2 MILLIGRAM DAILY; AFTER SURGERY, ONCE DAILY
     Route: 065

REACTIONS (5)
  - Hormone-refractory prostate cancer [Unknown]
  - Disease progression [Unknown]
  - Metastasis [Unknown]
  - Drug interaction [Unknown]
  - Drug ineffective [Unknown]
